FAERS Safety Report 19804627 (Version 1)
Quarter: 2021Q3

REPORT INFORMATION
  Report Type: Spontaneous
  Country: US (occurrence: US)
  Receive Date: 20210908
  Receipt Date: 20210908
  Transmission Date: 20211014
  Serious: No
  Sender: FDA-Public Use
  Company Number: NVSC2021US204308

PATIENT
  Sex: Male

DRUGS (1)
  1. VOLTAREN [Suspect]
     Active Substance: DICLOFENAC SODIUM
     Indication: ARTHRITIS
     Dosage: UNK
     Route: 065
     Dates: start: 20210829, end: 20210830

REACTIONS (3)
  - Application site urticaria [Unknown]
  - Expired product administered [Unknown]
  - Application site erythema [Unknown]

NARRATIVE: CASE EVENT DATE: 20210829
